FAERS Safety Report 8406584-0 (Version None)
Quarter: 2012Q2

REPORT INFORMATION
  Report Type: 
  Country: None (occurrence: None)
  Receive Date: 20120604
  Receipt Date: 20120524
  Transmission Date: 20120825
  Serious: Yes (Hospitalization)
  Sender: FDA-Public Use
  Company Number: DE-JNJFOC-20120520439

PATIENT
  Sex: Female
  Weight: 33.3 kg

DRUGS (3)
  1. AZATHIOPRINE [Concomitant]
  2. MESALAMINE [Concomitant]
     Route: 048
  3. REMICADE [Suspect]
     Indication: CROHN'S DISEASE
     Route: 042
     Dates: start: 20120308

REACTIONS (5)
  - SYNCOPE [None]
  - ATAXIA [None]
  - PARAESTHESIA [None]
  - VISUAL ACUITY REDUCED [None]
  - ASTHENIA [None]
